FAERS Safety Report 6512233-9 (Version None)
Quarter: 2009Q4

REPORT INFORMATION
  Report Type: 
  Country: None (occurrence: None)
  Receive Date: 20091222
  Receipt Date: 20090807
  Transmission Date: 20100525
  Serious: No
  Sender: FDA-Public Use
  Company Number: US-ASTRAZENECA-2009UW21857

PATIENT
  Age: 49 Year
  Sex: Female
  Weight: 73.9 kg

DRUGS (1)
  1. CRESTOR [Suspect]
     Indication: BLOOD CHOLESTEROL
     Route: 048
     Dates: start: 20090101, end: 20090806

REACTIONS (3)
  - DIARRHOEA [None]
  - MYALGIA [None]
  - PAIN [None]
